FAERS Safety Report 16088117 (Version 1)
Quarter: 2019Q1

REPORT INFORMATION
  Report Type: Spontaneous
  Country: US (occurrence: US)
  Receive Date: 20190214
  Receipt Date: 20190214
  Transmission Date: 20190418
  Serious: Yes (Hospitalization)
  Sender: FDA-Public Use
  Company Number: None

PATIENT
  Age: 14 Year
  Sex: Female
  Weight: 40.1 kg

DRUGS (13)
  1. HYDROCORTISONE. [Suspect]
     Active Substance: HYDROCORTISONE
     Dates: end: 20190204
  2. METHOTREXATE. [Suspect]
     Active Substance: METHOTREXATE
     Dates: end: 20190204
  3. ONCASPAR [Suspect]
     Active Substance: PEGASPARGASE
     Dates: end: 20190130
  4. GABAPENTIN. [Concomitant]
     Active Substance: GABAPENTIN
  5. PIPERACILLIN AND TAZOBACTAM [Concomitant]
     Active Substance: PIPERACILLIN SODIUM\TAZOBACTAM SODIUM
  6. CYTARABINE. [Suspect]
     Active Substance: CYTARABINE
     Dates: end: 20190204
  7. HEPARIN FLUSH [Concomitant]
     Active Substance: HEPARIN SODIUM
  8. DEXAMETHASONE. [Suspect]
     Active Substance: DEXAMETHASONE
     Dates: end: 20190201
  9. VINCRISTINE [Suspect]
     Active Substance: VINCRISTINE
     Dates: end: 20190204
  10. ACETAMINOPHEN. [Concomitant]
     Active Substance: ACETAMINOPHEN
  11. SULFAMETHOXAZOLE-TRIMETHOPRIM [Concomitant]
     Active Substance: SULFAMETHOXAZOLE\TRIMETHOPRIM
  12. ONDANSETRON [Concomitant]
     Active Substance: ONDANSETRON
  13. MITOXANTRONE HYDROCHLORIDE. [Suspect]
     Active Substance: MITOXANTRONE HYDROCHLORIDE
     Dates: end: 20190115

REACTIONS (5)
  - Pancytopenia [None]
  - Abdominal pain upper [None]
  - Escherichia bacteraemia [None]
  - Headache [None]
  - Cough [None]

NARRATIVE: CASE EVENT DATE: 20190207
